FAERS Safety Report 16581107 (Version 1)
Quarter: 2019Q3

REPORT INFORMATION
  Report Type: Spontaneous
  Country: US (occurrence: US)
  Receive Date: 20190716
  Receipt Date: 20190716
  Transmission Date: 20191004
  Serious: No
  Sender: FDA-Public Use
  Company Number: US-GALDERMA-US19017619

PATIENT
  Sex: Female

DRUGS (3)
  1. NEUTROGENA EXTRA BOOST HYDRATION [Concomitant]
     Indication: PRODUCT USED FOR UNKNOWN INDICATION
  2. DIFFERIN GEL [Suspect]
     Active Substance: ADAPALENE
     Indication: PRODUCT USED FOR UNKNOWN INDICATION
     Dosage: 0.1%
     Route: 061
     Dates: start: 201812
  3. NEUTROGENA EXTRA GENTLE FACE WASH [Concomitant]
     Indication: PRODUCT USED FOR UNKNOWN INDICATION

REACTIONS (4)
  - Dry skin [Unknown]
  - Intentional product misuse [Recovered/Resolved]
  - Skin exfoliation [Unknown]
  - Intentional underdose [Recovered/Resolved]
